FAERS Safety Report 8556063-5 (Version None)
Quarter: 2012Q3

REPORT INFORMATION
  Report Type: 
  Country: None (occurrence: None)
  Receive Date: 20120801
  Receipt Date: 20120723
  Transmission Date: 20120928
  Serious: Yes (Other)
  Sender: FDA-Public Use
  Company Number: US-BAYER-2011-105350

PATIENT
  Age: 19 Year
  Sex: Female
  Weight: 95.692 kg

DRUGS (2)
  1. MIRENA [Suspect]
     Indication: CONTRACEPTION
     Dosage: UNK
  2. DEPO-PROVERA [Suspect]
     Dosage: UNK
     Dates: start: 20110630, end: 20110630

REACTIONS (13)
  - MATERNAL EXPOSURE DURING PREGNANCY [None]
  - PREMATURE RUPTURE OF MEMBRANES [None]
  - SUBSTANCE ABUSE [None]
  - PREGNANCY WITH INJECTABLE CONTRACEPTIVE [None]
  - HAEMORRHAGIC ANAEMIA [None]
  - DEVICE EXPULSION [None]
  - PREMATURE LABOUR [None]
  - PREMATURE DELIVERY [None]
  - HEADACHE [None]
  - PREMATURE SEPARATION OF PLACENTA [None]
  - TOBACCO ABUSE [None]
  - PREGNANCY WITH CONTRACEPTIVE DEVICE [None]
  - OLIGOHYDRAMNIOS [None]
